FAERS Safety Report 7502331-5 (Version None)
Quarter: 2011Q2

REPORT INFORMATION
  Report Type: 
  Country: None (occurrence: None)
  Receive Date: 20110525
  Receipt Date: 20110511
  Transmission Date: 20111010
  Serious: Yes (Other)
  Sender: FDA-Public Use
  Company Number: GB-JNJFOC-20110403297

PATIENT
  Age: 72 Year
  Sex: Female

DRUGS (5)
  1. ADCAL [Concomitant]
  2. PREDNISOLONE [Concomitant]
  3. REMICADE [Suspect]
     Indication: RHEUMATOID ARTHRITIS
     Route: 042
     Dates: start: 20110302
  4. LEVOTHYROXINE SODIUM [Concomitant]
  5. ALENDRONIC ACID [Concomitant]

REACTIONS (8)
  - FLUSHING [None]
  - CHILLS [None]
  - DYSPNOEA [None]
  - COUGH [None]
  - PYREXIA [None]
  - SEPSIS [None]
  - INFUSION RELATED REACTION [None]
  - INFECTION [None]
